FAERS Safety Report 4399441-0 (Version None)
Quarter: 2004Q3

REPORT INFORMATION
  Report Type: 
  Country: None (occurrence: None)
  Receive Date: 20040712
  Receipt Date: 20040621
  Transmission Date: 20050211
  Serious: Yes (Other)
  Sender: FDA-Public Use
  Company Number: USA040465441

PATIENT
  Age: 9 Year
  Sex: Male
  Weight: 18 kg

DRUGS (5)
  1. STRATTERA [Suspect]
     Indication: ATTENTION DEFICIT/HYPERACTIVITY DISORDER
     Dosage: 60 MG/ 1DAY
     Dates: start: 20030214
  2. DIMETAPP [Concomitant]
  3. TYLENOL [Concomitant]
  4. REGLAN [Concomitant]
  5. PREVACID [Concomitant]

REACTIONS (5)
  - ABDOMINAL PAIN [None]
  - ABNORMAL BEHAVIOUR [None]
  - CHEST PAIN [None]
  - HEART RATE INCREASED [None]
  - LOSS OF CONSCIOUSNESS [None]
